FAERS Safety Report 12888458 (Version 5)
Quarter: 2017Q3

REPORT INFORMATION
  Report Type: Report from Study
  Country: US (occurrence: US)
  Receive Date: 20161027
  Receipt Date: 20170816
  Transmission Date: 20171127
  Serious: Yes (Hospitalization)
  Sender: FDA-Public Use
  Company Number: US-ROCHE-1845571

PATIENT
  Age: 44 Year
  Sex: Male
  Weight: 74.1 kg

DRUGS (17)
  1. COLACE [Concomitant]
     Active Substance: DOCUSATE SODIUM
     Indication: CONSTIPATION
     Route: 065
     Dates: start: 20160620
  2. CYCLOPHOSPHAMIDE. [Suspect]
     Active Substance: CYCLOPHOSPHAMIDE
     Indication: B-CELL LYMPHOMA
     Dosage: DOSE OF LAST CYCLOPHOSPHAMIDE: 1455 MG?DATE OF MOST RECENT DOSE: 30/SEP/2016 AT 13 10
     Route: 042
     Dates: start: 20160614
  3. VINCRISTINE [Suspect]
     Active Substance: VINCRISTINE
     Indication: B-CELL LYMPHOMA
     Dosage: DOSE OF LAST VINCRISTINE ADMINISTERED: 2 MG?DATE OF MOST RECENT DOSE OF VINCRISTINE: 30/SEP/2016 AT
     Route: 042
     Dates: start: 20160614
  4. ACETAMINOPHEN. [Concomitant]
     Active Substance: ACETAMINOPHEN
     Indication: PREMEDICATION
     Route: 065
     Dates: start: 20160930, end: 20160930
  5. NEULASTA [Concomitant]
     Active Substance: PEGFILGRASTIM
     Route: 065
     Dates: start: 20160930, end: 20160930
  6. LEVAQUIN [Concomitant]
     Active Substance: LEVOFLOXACIN
     Route: 065
     Dates: start: 20160919, end: 20161017
  7. FOSAPREPITANT DIMEGLUMINE [Concomitant]
     Active Substance: FOSAPREPITANT DIMEGLUMINE
     Indication: PREMEDICATION
     Route: 065
     Dates: start: 20160930, end: 20160930
  8. NEULASTA [Concomitant]
     Active Substance: PEGFILGRASTIM
     Indication: PREMEDICATION
     Dosage: FOR BLOOD SUPPORT
     Route: 065
     Dates: start: 20160614, end: 20170109
  9. DEXAMETHASONE SODIUM PHOSPHATE. [Concomitant]
     Active Substance: DEXAMETHASONE SODIUM PHOSPHATE
     Indication: PREMEDICATION
     Route: 065
     Dates: start: 20160930, end: 20160930
  10. PALONOSETRON HCL [Concomitant]
     Active Substance: PALONOSETRON HYDROCHLORIDE
     Indication: PREMEDICATION
     Route: 065
     Dates: start: 20160930, end: 20160930
  11. SUDAFED (PSEUDOEPHEDRINE HYDROCHLORIDE) [Concomitant]
     Indication: NASAL CONGESTION
     Route: 065
     Dates: start: 20161024
  12. PREDNISONE. [Suspect]
     Active Substance: PREDNISONE
     Indication: B-CELL LYMPHOMA
     Dosage: DOSE OF LAST PREDNISONE ADMINISTERED:100 MG?DATE OF MOST RECENT DOSE OF PREDNISONE: 04/OCT/2016?STAR
     Route: 048
     Dates: start: 20160614
  13. VENETOCLAX. [Suspect]
     Active Substance: VENETOCLAX
     Indication: B-CELL LYMPHOMA
     Dosage: DOSE OF LAST GDC-0199 ADMINISTERED: 800 MG?DATE OF MOST RECENT DOSE: 09/OCT/2016
     Route: 048
     Dates: start: 20160617
  14. RITUXIMAB. [Suspect]
     Active Substance: RITUXIMAB
     Indication: B-CELL LYMPHOMA
     Dosage: DOSE OF LAST RITUXIMAB ADMINISTERED: 728 MG?DATE OF MOST RECENT DOSE: 30/SEP/2016 AT 10 56
     Route: 042
     Dates: start: 20160614
  15. DOXORUBICIN [Suspect]
     Active Substance: DOXORUBICIN
     Indication: B-CELL LYMPHOMA
     Dosage: DOSE OF LAST DOXORUBICIN ADMINISTERED: 97 MG?DATE OF MOST RECENT DOSE OF DOXORUBICIN: 30/SEP/2016 AT
     Route: 042
     Dates: start: 20160614
  16. COMPAZINE [Concomitant]
     Active Substance: PROCHLORPERAZINE MALEATE
     Indication: NAUSEA
     Route: 065
     Dates: start: 20160614
  17. SOLU-MEDROL [Concomitant]
     Active Substance: METHYLPREDNISOLONE SODIUM SUCCINATE
     Indication: PREMEDICATION
     Route: 065
     Dates: start: 20160930, end: 20160930

REACTIONS (1)
  - Pulmonary embolism [Recovered/Resolved]

NARRATIVE: CASE EVENT DATE: 20161021
